FAERS Safety Report 15602493 (Version 1)
Quarter: 2018Q4

REPORT INFORMATION
  Report Type: Spontaneous
  Country: US (occurrence: US)
  Receive Date: 20181109
  Receipt Date: 20181109
  Transmission Date: 20190205
  Serious: Yes (Other)
  Sender: FDA-Public Use
  Company Number: US-HIKMA PHARMACEUTICALS USA INC.-US-H14001-18-06857

PATIENT
  Age: 70 Year
  Sex: Male

DRUGS (5)
  1. VENLAFAXINE [Suspect]
     Active Substance: VENLAFAXINE HYDROCHLORIDE
     Indication: VESTIBULAR MIGRAINE
     Dosage: HIGH-DOSE
     Route: 065
  2. PROPOFOL. [Concomitant]
     Active Substance: PROPOFOL
     Indication: ANAESTHESIA
     Route: 065
  3. MEPERIDINE [Suspect]
     Active Substance: MEPERIDINE
     Indication: POST PROCEDURAL COMPLICATION
     Route: 042
  4. FENTANYL. [Suspect]
     Active Substance: FENTANYL
     Indication: ANAESTHESIA PROCEDURE
     Dosage: THROUGHOUT THE 2-HOUR PROCEDURE
     Route: 040
  5. KETAMINE [Concomitant]
     Active Substance: KETAMINE
     Indication: ANAESTHESIA
     Route: 040

REACTIONS (2)
  - Condition aggravated [Recovered/Resolved]
  - Serotonin syndrome [Recovered/Resolved]
